FAERS Safety Report 18120860 (Version 1)
Quarter: 2020Q3

REPORT INFORMATION
  Report Type: Spontaneous
  Country: US (occurrence: US)
  Receive Date: 20200806
  Receipt Date: 20200806
  Transmission Date: 20201103
  Serious: Yes (Other)
  Sender: FDA-Public Use
  Company Number: US-AUROBINDO-AUR-APL-2020-037591

PATIENT
  Age: 76 Year
  Sex: Male

DRUGS (1)
  1. ALBUTEROL SULFATE INHALATION SOLUTION [Suspect]
     Active Substance: ALBUTEROL SULFATE
     Indication: HYPERKALAEMIA
     Dosage: 12 MILLIGRAM

REACTIONS (8)
  - Overdose [Unknown]
  - Tremor [Unknown]
  - Incorrect route of product administration [Unknown]
  - Shock [Unknown]
  - Anxiety [Unknown]
  - Tachycardia [Recovered/Resolved]
  - Lactic acidosis [Unknown]
  - Hypotension [Recovered/Resolved]
